FAERS Safety Report 16898857 (Version 1)
Quarter: 2019Q4

REPORT INFORMATION
  Report Type: Spontaneous
  Country: US (occurrence: US)
  Receive Date: 20191008
  Receipt Date: 20191008
  Transmission Date: 20200122
  Serious: Yes (Disabling)
  Sender: FDA-Public Use
  Company Number: None

PATIENT
  Age: 33 Year
  Sex: Female
  Weight: 85.5 kg

DRUGS (4)
  1. EFFEXOR XR [Concomitant]
     Active Substance: VENLAFAXINE HYDROCHLORIDE
  2. CELEBREX [Concomitant]
     Active Substance: CELECOXIB
  3. TROKENDI XR [Suspect]
     Active Substance: TOPIRAMATE
     Indication: NEURALGIA
     Route: 048
  4. MIRENA [Concomitant]
     Active Substance: LEVONORGESTREL

REACTIONS (18)
  - Anxiety [None]
  - Abnormal behaviour [None]
  - Aphasia [None]
  - Therapy cessation [None]
  - Paraesthesia [None]
  - Inadequate analgesia [None]
  - Clumsiness [None]
  - Drug ineffective [None]
  - Aggression [None]
  - Tearfulness [None]
  - Fear [None]
  - Sensory loss [None]
  - Cognitive disorder [None]
  - Emotional distress [None]
  - Thinking abnormal [None]
  - Hypoaesthesia [None]
  - Disturbance in attention [None]
  - Mood altered [None]

NARRATIVE: CASE EVENT DATE: 20190911
